FAERS Safety Report 4937343-9 (Version None)
Quarter: 2006Q1

REPORT INFORMATION
  Report Type: 
  Country: None (occurrence: None)
  Receive Date: 20060309
  Receipt Date: 20060227
  Transmission Date: 20060701
  Serious: Yes (Hospitalization)
  Sender: FDA-Public Use
  Company Number: TR-ABBOTT-06P-161-0326354-00

PATIENT
  Sex: Female
  Weight: 58 kg

DRUGS (2)
  1. KLACID MR [Suspect]
     Indication: SINUSITIS
     Route: 048
     Dates: start: 20060101, end: 20060101
  2. XYLOMETAZOLINE HYDROCHLORIDE [Concomitant]
     Indication: SINUSITIS
     Route: 045
     Dates: start: 20060101, end: 20060101

REACTIONS (3)
  - ANAPHYLACTIC REACTION [None]
  - CYANOSIS [None]
  - DYSPNOEA [None]
